FAERS Safety Report 18248285 (Version 1)
Quarter: 2020Q3

REPORT INFORMATION
  Report Type: Spontaneous
  Country: US (occurrence: US)
  Receive Date: 20200909
  Receipt Date: 20200909
  Transmission Date: 20201103
  Serious: No
  Sender: FDA-Public Use
  Company Number: US-BAYER-2020-175225

PATIENT
  Age: 71 Year
  Sex: Male

DRUGS (1)
  1. ESTRADIOL. [Suspect]
     Active Substance: ESTRADIOL
     Indication: HORMONE THERAPY

REACTIONS (7)
  - Off label use [None]
  - Nocturia [None]
  - Haematuria [None]
  - Micturition urgency [None]
  - Pollakiuria [None]
  - Product use in unapproved indication [None]
  - Product use issue [None]
